FAERS Safety Report 15754642 (Version 1)
Quarter: 2018Q4

REPORT INFORMATION
  Report Type: Other
  Country: US (occurrence: US)
  Receive Date: 20181224
  Receipt Date: 20181224
  Transmission Date: 20190205
  Serious: No
  Sender: FDA-Public Use
  Company Number: US-LAURUS LABS LIMITED-201800254

PATIENT
  Age: 37 Year
  Sex: Female

DRUGS (3)
  1. METFORMIN [Suspect]
     Active Substance: METFORMIN HYDROCHLORIDE
     Indication: OVARIAN GRANULOSA CELL TUMOUR
     Dosage: TWICE A DAY
     Route: 065
  2. LETROZOLE. [Concomitant]
     Active Substance: LETROZOLE
     Indication: OVARIAN GRANULOSA CELL TUMOUR
     Dosage: DAILY
     Route: 065
  3. METFORMIN [Suspect]
     Active Substance: METFORMIN HYDROCHLORIDE
     Indication: OVARIAN GRANULOSA CELL TUMOUR
     Route: 065

REACTIONS (1)
  - Off label use [Unknown]
